FAERS Safety Report 9330014 (Version 1)
Quarter: 2013Q2

REPORT INFORMATION
  Report Type: Spontaneous
  Country: US (occurrence: US)
  Receive Date: 20130604
  Receipt Date: 20130604
  Transmission Date: 20140414
  Serious: No
  Sender: FDA-Public Use
  Company Number: US-009507513-1305USA017673

PATIENT
  Sex: Female

DRUGS (2)
  1. DULERA [Suspect]
     Dosage: 2 DF, BID
     Route: 055
     Dates: start: 201201
  2. NORVASC [Concomitant]
     Dosage: 1 DF, QD

REACTIONS (3)
  - Cough [Unknown]
  - Throat irritation [Unknown]
  - Product quality issue [Unknown]
